FAERS Safety Report 6312788-3 (Version None)
Quarter: 2009Q3

REPORT INFORMATION
  Report Type: 
  Country: None (occurrence: None)
  Receive Date: 20090817
  Receipt Date: 20090817
  Transmission Date: 20100115
  Serious: No
  Sender: FDA-Public Use
  Company Number: None

PATIENT
  Sex: Male

DRUGS (1)
  1. DIVALPROEX SODIUM EXTENDED RELEASE [Suspect]
     Dosage: 500 MG 3HS 047
     Dates: start: 20090618, end: 20090630

REACTIONS (1)
  - LABORATORY TEST ABNORMAL [None]
